FAERS Safety Report 14229178 (Version 1)
Quarter: 2017Q4

REPORT INFORMATION
  Report Type: Spontaneous
  Country: US (occurrence: None)
  Receive Date: 20171124
  Receipt Date: 20171124
  Transmission Date: 20180321
  Serious: Yes (Hospitalization)
  Sender: FDA-Public Use
  Company Number: None

PATIENT
  Age: 62 Year
  Sex: Female

DRUGS (14)
  1. ANASTROZOLE. [Concomitant]
     Active Substance: ANASTROZOLE
  2. AMOX/CLAV [Concomitant]
     Active Substance: AMOXICILLIN\CLAVULANATE POTASSIUM
  3. FLUTICASONE. [Concomitant]
     Active Substance: FLUTICASONE
  4. PROCHLORPERAZINE. [Concomitant]
     Active Substance: PROCHLORPERAZINE
  5. BENZONATATE. [Concomitant]
     Active Substance: BENZONATATE
  6. FLUCONAZOLE. [Concomitant]
     Active Substance: FLUCONAZOLE
  7. HYD/POL/CPM [Concomitant]
  8. ARIPIPRAZOLE. [Concomitant]
     Active Substance: ARIPIPRAZOLE
  9. IBRANCE [Suspect]
     Active Substance: PALBOCICLIB
     Indication: BREAST CANCER
     Dosage: FREQUENCY - QD X 21 DAYS THEN OFF 7 DAYS
     Route: 048
     Dates: start: 20170919
  10. ALPRAZOLAM. [Concomitant]
     Active Substance: ALPRAZOLAM
  11. LEVOFLOXACIN. [Concomitant]
     Active Substance: LEVOFLOXACIN
  12. ZOLPIDEM [Concomitant]
     Active Substance: ZOLPIDEM\ZOLPIDEM TARTRATE
  13. PREDNISONE. [Concomitant]
     Active Substance: PREDNISONE
  14. DOXYCYCLINE. [Concomitant]
     Active Substance: DOXYCYCLINE

REACTIONS (4)
  - Full blood count decreased [None]
  - Vomiting [None]
  - Cough [None]
  - Malaise [None]

NARRATIVE: CASE EVENT DATE: 20171103
